FAERS Safety Report 14775327 (Version 1)
Quarter: 2018Q2

REPORT INFORMATION
  Report Type: Spontaneous
  Country: IE (occurrence: IE)
  Receive Date: 20180418
  Receipt Date: 20180418
  Transmission Date: 20180711
  Serious: Yes (Life-Threatening, Hospitalization, Other)
  Sender: FDA-Public Use
  Company Number: IE-IMPAX LABORATORIES, INC-2018-IPXL-01216

PATIENT
  Sex: Male
  Weight: 2 kg

DRUGS (6)
  1. MILRINONE [Suspect]
     Active Substance: MILRINONE
     Indication: VENTRICULAR HYPERTROPHY
     Dosage: 0.2 ?G/KG/HOUR
     Route: 065
  2. MILRINONE [Suspect]
     Active Substance: MILRINONE
     Dosage: 0.4 ?G/KG/HOUR
     Route: 065
  3. PROPRANOLOL HYDROCHLORIDE IR [Suspect]
     Active Substance: PROPRANOLOL HYDROCHLORIDE
     Indication: PRODUCT USE IN UNAPPROVED INDICATION
     Dosage: 1 MG/KG, 3 /DAY
     Route: 065
  4. MILRINONE [Suspect]
     Active Substance: MILRINONE
     Dosage: 0.6 ?G/KG/HOUR
     Route: 065
  5. PROPRANOLOL HYDROCHLORIDE IR [Suspect]
     Active Substance: PROPRANOLOL HYDROCHLORIDE
     Indication: HYPERTENSION NEONATAL
     Dosage: 1 MG, 3 /DAY
     Route: 065
  6. MILRINONE [Suspect]
     Active Substance: MILRINONE
     Dosage: WEANED OFF SLOWLY, UNK
     Route: 065

REACTIONS (7)
  - Product use issue [Unknown]
  - Drug ineffective for unapproved indication [Unknown]
  - Drug administered to patient of inappropriate age [Unknown]
  - Hypertensive crisis [Recovered/Resolved]
  - Periventricular leukomalacia [Recovered/Resolved]
  - Neonatal hyponatraemia [Unknown]
  - Left ventricular dysfunction [Unknown]
